FAERS Safety Report 16659355 (Version 2)
Quarter: 2019Q3

REPORT INFORMATION
  Report Type: Spontaneous
  Country: US (occurrence: US)
  Receive Date: 20190802
  Receipt Date: 20190802
  Transmission Date: 20191004
  Serious: No
  Sender: FDA-Public Use
  Company Number: US-JNJFOC-20190739011

PATIENT
  Sex: Female
  Weight: 51.76 kg

DRUGS (4)
  1. ZYRTEC [Suspect]
     Active Substance: CETIRIZINE HYDROCHLORIDE
     Indication: URTICARIA
     Route: 065
     Dates: start: 201907
  2. NEUTROGENA BEACH DEFENSE WATER + SUN PROTECTION SUNSCREEN SPRAY SPF 70 [Concomitant]
     Dosage: SPRAY IT HEAVILY ON THE LEGS ALL THE WAY TOWARD KNEES TWO TIMES.
     Dates: start: 20190721, end: 20190722
  3. CORTISONE [Concomitant]
     Active Substance: CORTISONE
     Indication: URTICARIA
     Route: 065
  4. BENADRYL [Suspect]
     Active Substance: DIPHENHYDRAMINE HYDROCHLORIDE
     Indication: URTICARIA
     Dosage: DATE OF LAST ADMINISTRATION: 25-JUL-2019?ONCE DAILY AT NIGHT
     Route: 048
     Dates: start: 20190721

REACTIONS (2)
  - Off label use [Unknown]
  - Product use in unapproved indication [Unknown]
